FAERS Safety Report 4895431-X (Version None)
Quarter: 2006Q1

REPORT INFORMATION
  Report Type: 
  Country: None (occurrence: None)
  Receive Date: 20060130
  Receipt Date: 20050405
  Transmission Date: 20060701
  Serious: Yes (Hospitalization)
  Sender: FDA-Public Use
  Company Number: US-GLAXOSMITHKLINE-A0553029A

PATIENT
  Sex: Male

DRUGS (4)
  1. EPIVIR [Suspect]
     Indication: HIV INFECTION
     Dosage: 150TAB TWICE PER DAY
     Route: 065
     Dates: start: 20020701
  2. MULTIPLE MEDICATIONS [Concomitant]
  3. KALETRA [Concomitant]
     Dosage: 3CAP TWICE PER DAY
     Dates: start: 20021101, end: 20050401
  4. VIREAD [Concomitant]
     Dosage: 300TAB PER DAY
     Route: 048
     Dates: start: 20021101

REACTIONS (1)
  - PANCREATITIS [None]
